FAERS Safety Report 8126635-0 (Version None)
Quarter: 2012Q1

REPORT INFORMATION
  Report Type: 
  Country: None (occurrence: None)
  Receive Date: 20120210
  Receipt Date: 20120131
  Transmission Date: 20120608
  Serious: No
  Sender: FDA-Public Use
  Company Number: US-BIOGENIDEC-2012BI000863

PATIENT
  Sex: Female

DRUGS (2)
  1. TYSABRI [Suspect]
     Indication: MULTIPLE SCLEROSIS
     Route: 042
     Dates: start: 20090522
  2. TYSABRI [Suspect]
     Route: 042
     Dates: start: 20120203

REACTIONS (4)
  - MUSCLE SPASMS [None]
  - DRUG SPECIFIC ANTIBODY PRESENT [None]
  - NYSTAGMUS [None]
  - CENTRAL NERVOUS SYSTEM LESION [None]
